FAERS Safety Report 10266650 (Version 1)
Quarter: 2014Q2

REPORT INFORMATION
  Report Type: Spontaneous
  Country: US (occurrence: US)
  Receive Date: 20140629
  Receipt Date: 20140629
  Transmission Date: 20141212
  Serious: Yes (Hospitalization)
  Sender: FDA-Public Use
  Company Number: US-PFIZER INC-2014173244

PATIENT
  Sex: 0

DRUGS (2)
  1. INLYTA [Suspect]
     Dosage: UNK
  2. ZOTAROLIMUS [Interacting]
     Indication: AORTIC VALVE STENOSIS
     Dosage: UNK

REACTIONS (2)
  - Drug interaction [Unknown]
  - Coronary artery restenosis [Unknown]
